FAERS Safety Report 6094396-5 (Version None)
Quarter: 2009Q1

REPORT INFORMATION
  Report Type: 
  Country: None (occurrence: None)
  Receive Date: 20090226
  Receipt Date: 20090219
  Transmission Date: 20090719
  Serious: Yes (Other)
  Sender: FDA-Public Use
  Company Number: GB-PFIZER INC-2009174125

PATIENT

DRUGS (2)
  1. ATORVASTATIN CALCIUM [Suspect]
     Route: 048
  2. ALCOHOL [Concomitant]
     Route: 048

REACTIONS (3)
  - CONVULSION [None]
  - DEHYDRATION [None]
  - RHABDOMYOLYSIS [None]
